FAERS Safety Report 4370676-6 (Version None)
Quarter: 2004Q2

REPORT INFORMATION
  Report Type: 
  Country: None (occurrence: None)
  Receive Date: 20040526
  Receipt Date: 20040517
  Transmission Date: 20050107
  Serious: Yes (Hospitalization)
  Sender: FDA-Public Use
  Company Number: FRWYE747707MAY04

PATIENT
  Age: 63 Year
  Sex: Female

DRUGS (3)
  1. RAPAMUNE [Suspect]
     Indication: PROPHYLAXIS AGAINST TRANSPLANT REJECTION
     Dosage: 6 MG 1X PER 1 DAY
     Route: 048
     Dates: start: 20030518
  2. CELLCEPT [Suspect]
     Indication: PROPHYLAXIS AGAINST TRANSPLANT REJECTION
     Dosage: 1.5 G 1X PER 1 DAY
     Route: 048
     Dates: start: 20030517
  3. PREDNISONE [Suspect]
     Indication: PROPHYLAXIS AGAINST TRANSPLANT REJECTION
     Dosage: 6 MG 1X PER 1 DAY
     Route: 048
     Dates: start: 20040517

REACTIONS (4)
  - BACTERIAL PYELONEPHRITIS [None]
  - ESCHERICHIA INFECTION [None]
  - HERPES SIMPLEX [None]
  - RENAL IMPAIRMENT [None]
